FAERS Safety Report 7340464-7 (Version None)
Quarter: 2011Q1

REPORT INFORMATION
  Report Type: 
  Country: None (occurrence: None)
  Receive Date: 20110309
  Receipt Date: 20110228
  Transmission Date: 20110831
  Serious: Yes (Hospitalization)
  Sender: FDA-Public Use
  Company Number: IT-SHIRE-SPV1-2011-00114

PATIENT
  Age: 65 Year
  Sex: Female

DRUGS (2)
  1. XAGRID [Suspect]
     Indication: THROMBOCYTOSIS
     Dosage: 3.5 MG DAY
     Route: 048
     Dates: start: 20100101, end: 20100101
  2. INSULIN [Suspect]
     Indication: PRODUCT USED FOR UNKNOWN INDICATION
     Dosage: UNK
     Dates: start: 20100501

REACTIONS (7)
  - CONFUSIONAL STATE [None]
  - HYPERGLYCAEMIA [None]
  - BALANCE DISORDER [None]
  - MEMORY IMPAIRMENT [None]
  - PANCREATIC DISORDER [None]
  - INSOMNIA [None]
  - DEPRESSION [None]
